FAERS Safety Report 7700227-7 (Version None)
Quarter: 2011Q3

REPORT INFORMATION
  Report Type: 
  Country: None (occurrence: None)
  Receive Date: 20110816
  Receipt Date: 20110803
  Transmission Date: 20111222
  Serious: Yes (Death, Hospitalization)
  Sender: FDA-Public Use
  Company Number: UTC-009233

PATIENT
  Age: 53 Year
  Sex: Female
  Weight: 66.8 kg

DRUGS (2)
  1. COUMADIN [Concomitant]
  2. REMODULIN [Suspect]
     Indication: COR PULMONALE CHRONIC
     Dosage: 28.8 UG/KG (0.02 UG/KG, 1 IN 1 MNI), SUBCUTANEOUS
     Route: 058
     Dates: start: 20101122

REACTIONS (3)
  - CONFUSIONAL STATE [None]
  - OEDEMA PERIPHERAL [None]
  - DYSPNOEA [None]
